FAERS Safety Report 4409650-X (Version None)
Quarter: 2004Q3

REPORT INFORMATION
  Report Type: 
  Country: None (occurrence: None)
  Receive Date: 20040727
  Receipt Date: 20040727
  Transmission Date: 20050211
  Serious: Yes (Hospitalization)
  Sender: FDA-Public Use
  Company Number: None

PATIENT
  Sex: Female
  Weight: 70.7611 kg

DRUGS (7)
  1. ADRIAMYCIN PFS [Suspect]
     Indication: BREAST CANCER
     Dosage: 110 MG IV Q 3 WKS
     Route: 042
     Dates: start: 20040714
  2. CYTOXAN [Suspect]
     Indication: BREAST CANCER
     Dosage: 1104 MG IV Q 3 WKS
     Route: 042
     Dates: start: 20040714
  3. ZOFRAN [Concomitant]
  4. ATIVAN [Concomitant]
  5. DECADRON [Concomitant]
  6. COMPAZINE [Concomitant]
  7. ATIVAN [Concomitant]

REACTIONS (1)
  - FEBRILE NEUTROPENIA [None]
